FAERS Safety Report 20862433 (Version 2)
Quarter: 2022Q4

REPORT INFORMATION
  Report Type: Report from Study
  Country: AU (occurrence: AU)
  Receive Date: 20220523
  Receipt Date: 20221206
  Transmission Date: 20230113
  Serious: Yes (Other)
  Sender: FDA-Public Use
  Company Number: AU-JNJFOC-20220541539

PATIENT
  Age: 32 Year
  Sex: Female

DRUGS (1)
  1. SIMPONI [Suspect]
     Active Substance: GOLIMUMAB
     Indication: Psoriatic arthropathy
     Dosage: COMPASSIONATE DOSE
     Route: 058

REACTIONS (7)
  - Peritonsillar abscess [Unknown]
  - Bradycardia [Unknown]
  - Infection [Not Recovered/Not Resolved]
  - Tonsillitis [Unknown]
  - Chest pain [Unknown]
  - Off label use [Unknown]
  - Product use issue [Unknown]
